FAERS Safety Report 6481608-9 (Version None)
Quarter: 2009Q4

REPORT INFORMATION
  Report Type: 
  Country: None (occurrence: None)
  Receive Date: 20091208
  Receipt Date: 20091124
  Transmission Date: 20100525
  Serious: Yes (Hospitalization)
  Sender: FDA-Public Use
  Company Number: US-SANOFI-AVENTIS-A03200905004

PATIENT
  Age: 78 Year
  Sex: Male
  Weight: 73.18 kg

DRUGS (12)
  1. DRONEDARONE [Suspect]
     Dosage: UNIT DOSE: 400 MG
     Route: 048
     Dates: start: 20090819, end: 20091014
  2. DRONEDARONE [Suspect]
     Route: 048
     Dates: start: 20091016, end: 20091019
  3. TOPROL-XL [Suspect]
     Route: 048
     Dates: start: 20090819, end: 20091014
  4. ASPIRIN [Concomitant]
  5. COUMADIN [Concomitant]
     Dosage: 5MG FIVE DAYS PER WEEK AND 7.5MG ON WEDNESDAYS AND SATURDAYS
  6. ALTACE [Concomitant]
  7. IMDUR [Concomitant]
     Dates: end: 20091019
  8. LIPITOR [Concomitant]
  9. ZETIA [Concomitant]
  10. FLOMAX [Concomitant]
  11. PROSCAR [Concomitant]
  12. NEXIUM /UNK/ [Concomitant]

REACTIONS (9)
  - ATRIAL FIBRILLATION [None]
  - CAROTID ARTERY STENOSIS [None]
  - DIZZINESS [None]
  - EYE ROLLING [None]
  - LABILE BLOOD PRESSURE [None]
  - LOSS OF CONSCIOUSNESS [None]
  - SINUS BRADYCARDIA [None]
  - SYNCOPE [None]
  - UNRESPONSIVE TO STIMULI [None]
